FAERS Safety Report 15495582 (Version 1)
Quarter: 2018Q4

REPORT INFORMATION
  Report Type: Report from Study
  Country: US (occurrence: US)
  Receive Date: 20181013
  Receipt Date: 20181013
  Transmission Date: 20190205
  Serious: Yes (Hospitalization)
  Sender: FDA-Public Use
  Company Number: US-MALLINCKRODT-T201804341

PATIENT
  Sex: Female

DRUGS (1)
  1. REPOSITORY CORTICOTROPIN INJECTION [Suspect]
     Active Substance: CORTICOTROPIN
     Indication: POLYMYOSITIS
     Dosage: 80 UNITS/1 ML, 2 TIMES PER WEEK  WEDNESDAY AND SUNDAY
     Route: 058
     Dates: start: 20171227, end: 20180919

REACTIONS (4)
  - Blood pressure decreased [Not Recovered/Not Resolved]
  - Cardiac disorder [Not Recovered/Not Resolved]
  - Fatigue [Unknown]
  - Swelling [Not Recovered/Not Resolved]

NARRATIVE: CASE EVENT DATE: 2018
